FAERS Safety Report 13065853 (Version 1)
Quarter: 2016Q4

REPORT INFORMATION
  Report Type: Spontaneous
  Country: DE (occurrence: DE)
  Receive Date: 20161227
  Receipt Date: 20161227
  Transmission Date: 20170207
  Serious: Yes (Life-Threatening, Hospitalization)
  Sender: FDA-Public Use
  Company Number: DE-SA-2016SA234154

PATIENT
  Age: 31 Year
  Sex: Female

DRUGS (3)
  1. IBUHEXAL [Concomitant]
     Active Substance: IBUPROFEN
     Indication: HEADACHE
     Route: 048
  2. LEMTRADA [Suspect]
     Active Substance: ALEMTUZUMAB
     Indication: MULTIPLE SCLEROSIS
     Route: 042
     Dates: start: 20150316, end: 20150320
  3. PREDNISOLON [Suspect]
     Active Substance: PREDNISOLONE
     Indication: MULTIPLE SCLEROSIS
     Route: 042
     Dates: start: 201504

REACTIONS (3)
  - Pneumonia [Unknown]
  - Leukopenia [Unknown]
  - Pyrexia [Unknown]

NARRATIVE: CASE EVENT DATE: 20150512
